FAERS Safety Report 6552203-8 (Version None)
Quarter: 2010Q1

REPORT INFORMATION
  Report Type: 
  Country: None (occurrence: None)
  Receive Date: 20100126
  Receipt Date: 20100120
  Transmission Date: 20100710
  Serious: Yes (Death)
  Sender: FDA-Public Use
  Company Number: JP-MERCK-1001USA01943

PATIENT
  Age: 73 Year
  Sex: Female

DRUGS (2)
  1. STROMECTOL [Suspect]
     Indication: ACARODERMATITIS
     Route: 048
     Dates: start: 20091109, end: 20091221
  2. TALION [Concomitant]
     Indication: PRURITUS
     Route: 048
     Dates: start: 20091109, end: 20091221

REACTIONS (2)
  - DEATH [None]
  - DECREASED APPETITE [None]
